FAERS Safety Report 6984533-X (Version None)
Quarter: 2010Q3

REPORT INFORMATION
  Report Type: 
  Country: None (occurrence: None)
  Receive Date: 20100914
  Receipt Date: 20100914
  Transmission Date: 20110219
  Serious: No
  Sender: FDA-Public Use
  Company Number: None

PATIENT
  Age: 19 Year
  Sex: Male
  Weight: 90.7194 kg

DRUGS (11)
  1. LITHIUM CARBONATE [Suspect]
     Dosage: 750 BID LIQ PO
     Route: 048
     Dates: start: 20100310, end: 20100325
  2. DSS [Concomitant]
  3. RANITIDINE [Concomitant]
  4. MULTI-VITAMIN [Concomitant]
  5. RISPERIDONE [Concomitant]
  6. MELATONIN [Concomitant]
  7. FLOMAX [Concomitant]
  8. CLONIDINE [Concomitant]
  9. BENZTROPINE MESYLATE [Concomitant]
  10. CITALOPRAM HYDROBROMIDE [Concomitant]
  11. METHYLPHENIDIATE [Concomitant]

REACTIONS (2)
  - INSOMNIA [None]
  - RASH [None]
